FAERS Safety Report 4364368-7 (Version None)
Quarter: 2004Q2

REPORT INFORMATION
  Report Type: 
  Country: None (occurrence: None)
  Receive Date: 20040519
  Receipt Date: 20040507
  Transmission Date: 20050107
  Serious: Yes (Other)
  Sender: FDA-Public Use
  Company Number: 2004031094

PATIENT
  Sex: Female

DRUGS (2)
  1. DOXEPIN (CAPS) (DOXEPIN) (DOXEPIN) [Suspect]
     Indication: DEPRESSION
     Dosage: 25 MG (1 IN 1 D)
  2. ZOLOFT [Suspect]
     Indication: DEPRESSION
     Dosage: 25 MG (1 IN 1 D), ORAL
     Route: 048
     Dates: start: 20040401

REACTIONS (10)
  - AGITATION [None]
  - CHONDROPATHY [None]
  - DEPRESSION [None]
  - DRUG INEFFECTIVE [None]
  - FEELING HOT [None]
  - FLUSHING [None]
  - KNEE ARTHROPLASTY [None]
  - NERVOUSNESS [None]
  - PAIN [None]
  - WEIGHT DECREASED [None]
